FAERS Safety Report 5973878-8 (Version None)
Quarter: 2008Q4

REPORT INFORMATION
  Report Type: 
  Country: None (occurrence: None)
  Receive Date: 20081201
  Receipt Date: 20080919
  Transmission Date: 20090506
  Serious: No
  Sender: FDA-Public Use
  Company Number: US-AMGEN-KDL307177

PATIENT
  Sex: Male

DRUGS (6)
  1. ENBREL [Suspect]
     Indication: PSORIATIC ARTHROPATHY
     Route: 058
     Dates: start: 20050531
  2. ENBREL [Suspect]
     Indication: PSORIASIS
  3. AZULFIDINE EN-TABS [Concomitant]
     Route: 048
     Dates: start: 20080301
  4. DESOWEN [Concomitant]
     Dates: start: 20061204
  5. ELIDEL [Concomitant]
     Dates: start: 20041203, end: 20050201
  6. UNKNOWN [Concomitant]
     Dates: start: 20041203, end: 20050101

REACTIONS (7)
  - ALANINE AMINOTRANSFERASE INCREASED [None]
  - ASPARTATE AMINOTRANSFERASE INCREASED [None]
  - FATIGUE [None]
  - LEUKOPENIA [None]
  - MUSCULOSKELETAL STIFFNESS [None]
  - PSORIASIS [None]
  - WHITE BLOOD CELL COUNT DECREASED [None]
